FAERS Safety Report 9097826 (Version 1)
Quarter: 2013Q1

REPORT INFORMATION
  Report Type: Report from Study
  Country: US (occurrence: US)
  Receive Date: 20130212
  Receipt Date: 20130212
  Transmission Date: 20140127
  Serious: Yes (Other)
  Sender: FDA-Public Use
  Company Number: US-ROCHE-1190058

PATIENT
  Sex: Male
  Weight: 79.45 kg

DRUGS (1)
  1. XELODA [Suspect]
     Indication: THROAT CANCER
     Route: 048
     Dates: start: 201211

REACTIONS (3)
  - Blindness [Not Recovered/Not Resolved]
  - Increased appetite [Not Recovered/Not Resolved]
  - Weight increased [Not Recovered/Not Resolved]
